FAERS Safety Report 15360446 (Version 4)
Quarter: 2019Q3

REPORT INFORMATION
  Report Type: Spontaneous
  Country: US (occurrence: US)
  Receive Date: 20180907
  Receipt Date: 20190722
  Transmission Date: 20191004
  Serious: No
  Sender: FDA-Public Use
  Company Number: US-PFIZER INC-2018360201

PATIENT
  Age: 41 Year
  Sex: Female
  Weight: 48 kg

DRUGS (4)
  1. IBRANCE [Suspect]
     Active Substance: PALBOCICLIB
     Dosage: 100 MG, CYCLIC, [DAILY, 3 WEEKS ON 1 WEEK OFF]
     Route: 048
     Dates: start: 201810
  2. LETROZOLE. [Concomitant]
     Active Substance: LETROZOLE
     Indication: BREAST CANCER FEMALE
     Dosage: 2.5 MG, DAILY
     Dates: start: 201810
  3. IBRANCE [Suspect]
     Active Substance: PALBOCICLIB
     Indication: BREAST CANCER FEMALE
     Dosage: 100 MG, CYCLIC (DAILY FOR 21DAYS ON, 7 DAYS OFF)
     Route: 048
     Dates: start: 20180821
  4. RISACAL-D [Concomitant]
     Dosage: 1 DF, DAILY, [(105 MG- 120 UNITS) 1 TAB DAILY]
     Dates: start: 201810

REACTIONS (2)
  - Pruritus [Unknown]
  - Rash pruritic [Recovering/Resolving]

NARRATIVE: CASE EVENT DATE: 20180904
